FAERS Safety Report 7206432-0 (Version None)
Quarter: 2010Q4

REPORT INFORMATION
  Report Type: 
  Country: None (occurrence: None)
  Receive Date: 20101217
  Receipt Date: 20101206
  Transmission Date: 20110411
  Serious: Yes (Death)
  Sender: FDA-Public Use
  Company Number: 2010MA001101

PATIENT
  Age: 63 Year
  Sex: Female
  Weight: 120 kg

DRUGS (17)
  1. TRAMADOL HYDROCHLORIDE [Suspect]
     Indication: BACK PAIN
     Dosage: 50 MG; QID; PO
     Route: 048
     Dates: start: 20100322, end: 20100325
  2. CITALOPRAM HYDROBROMIDE [Suspect]
     Dosage: 40 MG;QD;PO
     Route: 048
     Dates: start: 20050714, end: 20100330
  3. CHLORPROMAZINE [Concomitant]
  4. VITAMIN B [Concomitant]
  5. ASPIRIN [Concomitant]
  6. ATORVASTATIN CALCIUM [Concomitant]
  7. FUROSEMIDE [Concomitant]
  8. METFORMIN [Concomitant]
  9. TERBINAFINE HCL [Concomitant]
  10. ORLISTAT [Concomitant]
  11. IBUPROFEN [Concomitant]
  12. PARACETAMOL [Concomitant]
  13. CODEINE [Concomitant]
  14. LACTULOSE [Concomitant]
  15. TEMAZEPAM [Concomitant]
  16. CHLORDIAZEPOXIDE [Concomitant]
  17. PIOGLITAZONE [Concomitant]

REACTIONS (3)
  - DRUG TOXICITY [None]
  - MULTIPLE DRUG OVERDOSE [None]
  - SEROTONIN SYNDROME [None]
